FAERS Safety Report 12592559 (Version 1)
Quarter: 2016Q3

REPORT INFORMATION
  Report Type: Spontaneous
  Country: US (occurrence: US)
  Receive Date: 20160726
  Receipt Date: 20160726
  Transmission Date: 20161109
  Serious: Yes (Hospitalization, Other)
  Sender: FDA-Public Use
  Company Number: US-TEVA-679785USA

PATIENT
  Sex: Female
  Weight: 95.79 kg

DRUGS (10)
  1. PANTOPRAZOLE SODIUM. [Concomitant]
     Active Substance: PANTOPRAZOLE SODIUM
     Indication: GASTRITIS
     Dosage: 40 MILLIGRAM DAILY;
     Dates: start: 2013
  2. METHOTREXATE. [Suspect]
     Active Substance: METHOTREXATE
     Indication: RHEUMATOID ARTHRITIS
     Dates: start: 2012, end: 2014
  3. ARAVA [Suspect]
     Active Substance: LEFLUNOMIDE
     Indication: RHEUMATOID ARTHRITIS
     Dates: start: 2012, end: 2014
  4. ENBREL [Suspect]
     Active Substance: ETANERCEPT
     Indication: RHEUMATOID ARTHRITIS
     Dates: start: 2012, end: 2014
  5. ERTANERCEPT [Suspect]
     Active Substance: ETANERCEPT
     Indication: RHEUMATOID ARTHRITIS
     Dates: start: 2012, end: 2014
  6. HERBALIFE [Concomitant]
     Indication: PHYTOTHERAPY
  7. DOXYCYCLINE HYCLATE. [Concomitant]
     Active Substance: DOXYCYCLINE HYCLATE
     Indication: EYE DISORDER
     Dosage: 200 MILLIGRAM DAILY;
     Dates: start: 2016
  8. XELJANZ [Suspect]
     Active Substance: TOFACITINIB CITRATE
     Indication: RHEUMATOID ARTHRITIS
     Dosage: 10 MILLIGRAM DAILY;
     Dates: start: 2016
  9. SULFASALAZINE. [Suspect]
     Active Substance: SULFASALAZINE
     Indication: RHEUMATOID ARTHRITIS
     Dates: start: 2012, end: 2014
  10. NAPROXEN. [Concomitant]
     Active Substance: NAPROXEN
     Indication: JOINT SWELLING
     Dosage: 1000 MILLIGRAM DAILY;
     Dates: start: 201506

REACTIONS (10)
  - Rheumatoid arthritis [Unknown]
  - Nervousness [Recovering/Resolving]
  - Adverse event [Recovering/Resolving]
  - Drug hypersensitivity [Unknown]
  - Abdominal pain upper [Unknown]
  - Weight increased [Recovering/Resolving]
  - Gastrointestinal disorder [Not Recovered/Not Resolved]
  - Gait disturbance [Unknown]
  - Rash [Not Recovered/Not Resolved]
  - Anxiety [Recovering/Resolving]

NARRATIVE: CASE EVENT DATE: 2016
